FAERS Safety Report 13345296 (Version 1)
Quarter: 2017Q1

REPORT INFORMATION
  Report Type: Spontaneous
  Country: US (occurrence: US)
  Receive Date: 20170317
  Receipt Date: 20170317
  Transmission Date: 20170428
  Serious: No
  Sender: FDA-Public Use
  Company Number: US-009507513-1702USA012111

PATIENT
  Sex: Female

DRUGS (1)
  1. NEXPLANON [Suspect]
     Active Substance: ETONOGESTREL
     Dosage: 68 MG, ONE ROD EVERY 3 YEARS, IN THE ARM
     Route: 059
     Dates: end: 20170227

REACTIONS (2)
  - Device breakage [Recovered/Resolved]
  - No adverse event [Unknown]
